FAERS Safety Report 12996078 (Version 3)
Quarter: 2017Q1

REPORT INFORMATION
  Report Type: Spontaneous
  Country: US (occurrence: US)
  Receive Date: 20161202
  Receipt Date: 20170120
  Transmission Date: 20170428
  Serious: Yes (Other)
  Sender: FDA-Public Use
  Company Number: US-DSJP-DSU-2016-139439

PATIENT

DRUGS (1)
  1. BENICAR [Suspect]
     Active Substance: OLMESARTAN MEDOXOMIL
     Indication: PRODUCT USED FOR UNKNOWN INDICATION
     Dosage: 20 MG, QD

REACTIONS (20)
  - Hypertension [Unknown]
  - Renal abscess [Unknown]
  - Tachycardia [Unknown]
  - Chest pain [Unknown]
  - Mitral valve incompetence [Unknown]
  - Haemodialysis [Unknown]
  - Cardiac failure congestive [Unknown]
  - Drug abuse [Unknown]
  - Alcohol abuse [Unknown]
  - Sciatic nerve neuropathy [Unknown]
  - Tobacco abuse [Unknown]
  - Pneumonia [Unknown]
  - Drug abuser [Unknown]
  - Anaemia [Unknown]
  - Synovial cyst [Unknown]
  - Hepatitis C [Unknown]
  - Flank pain [Unknown]
  - Splenomegaly [Unknown]
  - Hepatic cyst [Unknown]
  - Acute kidney injury [Unknown]
